FAERS Safety Report 7670156-6 (Version None)
Quarter: 2011Q3

REPORT INFORMATION
  Report Type: 
  Country: None (occurrence: None)
  Receive Date: 20110808
  Receipt Date: 20110729
  Transmission Date: 20111222
  Serious: Yes (Hospitalization, Other)
  Sender: FDA-Public Use
  Company Number: US-ASTRAZENECA-2011SE32306

PATIENT
  Age: 48 Year
  Sex: Female

DRUGS (4)
  1. SEROQUEL [Suspect]
     Indication: SLEEP DISORDER
     Route: 048
  2. SEROQUEL [Suspect]
     Route: 048
  3. SEROQUEL [Suspect]
     Route: 048
  4. SEROQUEL [Suspect]
     Indication: DEPRESSION
     Route: 048

REACTIONS (8)
  - LOSS OF CONSCIOUSNESS [None]
  - FEELING ABNORMAL [None]
  - LOWER LIMB FRACTURE [None]
  - DRUG DOSE OMISSION [None]
  - ANAEMIA [None]
  - MALAISE [None]
  - OFF LABEL USE [None]
  - INSOMNIA [None]
